FAERS Safety Report 16630527 (Version 1)
Quarter: 2019Q3

REPORT INFORMATION
  Report Type: Report from Study
  Country: EC (occurrence: EC)
  Receive Date: 20190725
  Receipt Date: 20190725
  Transmission Date: 20191004
  Serious: Yes (Death)
  Sender: FDA-Public Use
  Company Number: EC-INCYTE CORPORATION-2017IN005537

PATIENT

DRUGS (7)
  1. JAKAVI [Suspect]
     Active Substance: RUXOLITINIB
     Dosage: 15 MG, QD (ONCE DAILY)
     Route: 048
     Dates: start: 20181004
  2. JAKAVI [Suspect]
     Active Substance: RUXOLITINIB
     Indication: MYELOFIBROSIS
     Dosage: 15 MG, BID(TWICE DAILY)
     Route: 048
     Dates: start: 20161013, end: 20170215
  3. JAKAVI [Suspect]
     Active Substance: RUXOLITINIB
     Dosage: 15 MG, QD (ONCE DAILY)
     Route: 048
     Dates: start: 20170223, end: 20170423
  4. JAKAVI [Suspect]
     Active Substance: RUXOLITINIB
     Dosage: 15 MG, BID (TWICE DAILY)
     Route: 048
     Dates: start: 20170424, end: 20170620
  5. JAKAVI [Suspect]
     Active Substance: RUXOLITINIB
     Dosage: 15 MG, BID (TWICE DAILY)
     Route: 048
     Dates: start: 20170809, end: 20180717
  6. JAKAVI [Suspect]
     Active Substance: RUXOLITINIB
     Dosage: 15 MG, QD (ONCE DAILY)
     Route: 048
     Dates: start: 20170621, end: 20170808
  7. JAKAVI [Suspect]
     Active Substance: RUXOLITINIB
     Dosage: 15 MG, QD (ONCE DAILY)
     Route: 048
     Dates: start: 20180718, end: 20180821

REACTIONS (2)
  - Aneurysm [Fatal]
  - Product prescribing error [Unknown]

NARRATIVE: CASE EVENT DATE: 20190714
